FAERS Safety Report 12199006 (Version 1)
Quarter: 2016Q1

REPORT INFORMATION
  Report Type: Spontaneous
  Country: US (occurrence: US)
  Receive Date: 20160322
  Receipt Date: 20160322
  Transmission Date: 20160526
  Serious: No
  Sender: FDA-Public Use
  Company Number: US-BAYER-2016-055343

PATIENT
  Age: 74 Year
  Sex: Female
  Weight: 52.15 kg

DRUGS (1)
  1. ALEVE [Suspect]
     Active Substance: NAPROXEN SODIUM
     Indication: HEADACHE
     Dosage: UNK, PRN
     Route: 048
     Dates: start: 20160317

REACTIONS (2)
  - Product packaging issue [None]
  - Product package associated injury [Recovered/Resolved]

NARRATIVE: CASE EVENT DATE: 20160317
